FAERS Safety Report 9846986 (Version 2)
Quarter: 2014Q1

REPORT INFORMATION
  Report Type: Report from Study
  Country: DE (occurrence: DE)
  Receive Date: 20140127
  Receipt Date: 20140127
  Transmission Date: 20141002
  Serious: Yes (Death, Life-Threatening, Hospitalization)
  Sender: FDA-Public Use
  Company Number: DE-TEVA-305235GER

PATIENT
  Age: 59 Year
  Sex: Female

DRUGS (12)
  1. PREDNISOLONE [Suspect]
     Indication: DIARRHOEA
     Dosage: 150 MILLIGRAM DAILY;
     Route: 048
     Dates: start: 20110914, end: 20111011
  2. PREDNISOLONE [Suspect]
     Route: 042
     Dates: start: 20110930
  3. ASS [Suspect]
     Indication: PERIPHERAL ARTERIAL OCCLUSIVE DISEASE
     Dosage: 100 MILLIGRAM DAILY;
     Route: 048
     Dates: start: 19960701, end: 20111006
  4. GEMCITABINE [Suspect]
  5. IPILIMUMAB [Suspect]
     Indication: MALIGNANT MELANOMA
     Route: 042
     Dates: start: 20110719, end: 20110902
  6. FRAGMIN [Suspect]
     Dosage: 5000 IU (INTERNATIONAL UNIT) DAILY;
     Route: 058
     Dates: start: 20110909, end: 20110927
  7. ARIXTRA [Concomitant]
     Dates: start: 20110722, end: 20110926
  8. ZOPICLON [Concomitant]
     Dates: start: 20110719
  9. PANTOZOL [Concomitant]
  10. SALOFALK [Concomitant]
     Dates: start: 20110919, end: 20111011
  11. LACTOBACILLUS [Concomitant]
     Dates: start: 20110901, end: 20110926
  12. METHYLPREDNISOLONE [Concomitant]
     Route: 042
     Dates: start: 20110910, end: 20110913

REACTIONS (8)
  - Neoplasm progression [Fatal]
  - Cerebral haemorrhage [Fatal]
  - Pancytopenia [Fatal]
  - Respiratory failure [Fatal]
  - Colitis [Fatal]
  - Diarrhoea [Fatal]
  - Vascular occlusion [Fatal]
  - Diarrhoea haemorrhagic [Fatal]
